FAERS Safety Report 4612519-9 (Version None)
Quarter: 2005Q1

REPORT INFORMATION
  Report Type: 
  Country: None (occurrence: None)
  Receive Date: 20050316
  Receipt Date: 20050316
  Transmission Date: 20050727
  Serious: Yes (Hospitalization)
  Sender: FDA-Public Use
  Company Number: None

PATIENT
  Age: 37 Year
  Sex: Male

DRUGS (1)
  1. PROLIXIN [Suspect]
     Dosage: 10 MG PO QD
     Route: 048

REACTIONS (1)
  - INTENTIONAL MISUSE [None]
